FAERS Safety Report 6982608-2 (Version None)
Quarter: 2010Q3

REPORT INFORMATION
  Report Type: 
  Country: None (occurrence: None)
  Receive Date: 20100914
  Receipt Date: 20100223
  Transmission Date: 20110219
  Serious: No
  Sender: FDA-Public Use
  Company Number: US-PFIZER INC-2010005925

PATIENT
  Sex: Female
  Weight: 79.4 kg

DRUGS (3)
  1. LYRICA [Suspect]
     Indication: FIBROMYALGIA
     Dosage: 75 MG, 3X/DAY
     Dates: start: 20070101
  2. PRAVASTATIN [Concomitant]
     Indication: BLOOD CHOLESTEROL INCREASED
     Dosage: UNK
  3. PROPRANOLOL [Concomitant]
     Indication: HEADACHE
     Dosage: UNK

REACTIONS (2)
  - BLOOD CHOLESTEROL ABNORMAL [None]
  - PAIN [None]
